FAERS Safety Report 5982368-8 (Version None)
Quarter: 2008Q4

REPORT INFORMATION
  Report Type: 
  Country: None (occurrence: None)
  Receive Date: 20081208
  Receipt Date: 20081126
  Transmission Date: 20090506
  Serious: Yes (Other)
  Sender: FDA-Public Use
  Company Number: ES-BIOGENIDEC-2008BI032140

PATIENT
  Age: 38 Year
  Sex: Male
  Weight: 87 kg

DRUGS (1)
  1. TYSABRI [Suspect]
     Indication: MULTIPLE SCLEROSIS
     Route: 042
     Dates: start: 20080520, end: 20081020

REACTIONS (1)
  - ALVEOLITIS ALLERGIC [None]
